FAERS Safety Report 12749842 (Version 1)
Quarter: 2016Q3

REPORT INFORMATION
  Report Type: Spontaneous
  Country: JP (occurrence: JP)
  Receive Date: 20160916
  Receipt Date: 20160916
  Transmission Date: 20161109
  Serious: Yes (Other)
  Sender: FDA-Public Use
  Company Number: JP-GLAXOSMITHKLINE-JP2016JPN133171

PATIENT
  Age: 28 Year
  Sex: Female

DRUGS (5)
  1. SERETIDE [Suspect]
     Active Substance: FLUTICASONE PROPIONATE\SALMETEROL XINAFOATE
     Indication: ASTHMA
     Dosage: UNK
     Route: 055
  2. FENTANYL. [Suspect]
     Active Substance: FENTANYL
     Dosage: 0.01 MG, U
     Route: 050
  3. PROCATEROL [Suspect]
     Active Substance: PROCATEROL HYDROCHLORIDE
     Indication: ASTHMA
     Route: 055
  4. FLOMOXEF SODIUM [Suspect]
     Active Substance: FLOMOXEF SODIUM
     Dosage: 1 G, U
     Route: 042
  5. BUPIVACAINE HYDROCHLORIDE HYDRATE [Suspect]
     Active Substance: BUPIVACAINE HYDROCHLORIDE
     Dosage: 2.4 ML, U
     Route: 050

REACTIONS (11)
  - Tracheal stenosis [Recovering/Resolving]
  - Premature labour [Unknown]
  - Lip oedema [Recovering/Resolving]
  - Wheezing [Recovering/Resolving]
  - Anaphylactic shock [Recovering/Resolving]
  - Stridor [Recovering/Resolving]
  - Nausea [Recovering/Resolving]
  - Exposure during pregnancy [Unknown]
  - Dyspnoea [Recovering/Resolving]
  - Urticaria [Recovering/Resolving]
  - Face oedema [Recovering/Resolving]
